FAERS Safety Report 20219870 (Version 1)
Quarter: 2021Q4

REPORT INFORMATION
  Report Type: Spontaneous
  Country: TH (occurrence: TH)
  Receive Date: 20211222
  Receipt Date: 20211222
  Transmission Date: 20220303
  Serious: Yes (Hospitalization, Other)
  Sender: FDA-Public Use
  Company Number: TH-SUNOVION-2021DSP019892

PATIENT
  Age: 69 Year
  Sex: Female

DRUGS (14)
  1. LATUDA [Suspect]
     Active Substance: LURASIDONE HYDROCHLORIDE
     Indication: Schizophrenia
     Dosage: 20 MG
     Route: 048
     Dates: start: 20201105
  2. LATUDA [Suspect]
     Active Substance: LURASIDONE HYDROCHLORIDE
     Dosage: 40 MG
     Route: 048
  3. TRAZODONE [Suspect]
     Active Substance: TRAZODONE HYDROCHLORIDE
     Indication: Schizophrenia
     Dosage: 50 MG
     Route: 048
     Dates: start: 20201105
  4. CLORAZEPATE DIPOTASSIUM [Suspect]
     Active Substance: CLORAZEPATE DIPOTASSIUM
     Indication: Schizophrenia
     Dosage: 5 MG
     Route: 048
     Dates: start: 20201105
  5. QUETIAPINE [Suspect]
     Active Substance: QUETIAPINE
     Indication: Schizophrenia
     Dosage: 12.5 MG
     Route: 048
     Dates: start: 20201105
  6. QUETIAPINE [Suspect]
     Active Substance: QUETIAPINE
     Dosage: 50 MG
     Route: 048
  7. MEMANTINE [Concomitant]
     Active Substance: MEMANTINE
     Dosage: 10 MG
     Route: 065
     Dates: start: 20201029
  8. MEMANTINE [Concomitant]
     Active Substance: MEMANTINE
     Dosage: 5 MG
     Route: 065
  9. MEMANTINE [Concomitant]
     Active Substance: MEMANTINE
     Dosage: 10 MG
     Route: 065
  10. MEMANTINE [Concomitant]
     Active Substance: MEMANTINE
     Dosage: 15 MG
     Route: 065
  11. MEMANTINE [Concomitant]
     Active Substance: MEMANTINE
     Dosage: 20MG/DAY
     Route: 065
  12. LEVETIRACETAM [Concomitant]
     Active Substance: LEVETIRACETAM
     Dosage: 1000 MG/DAY
     Route: 065
     Dates: start: 20201028, end: 20210121
  13. MANIDIPINE [Concomitant]
     Active Substance: MANIDIPINE
     Dosage: 10 MG/DAY
     Route: 065
     Dates: start: 20201028
  14. FOLIC ACID [Concomitant]
     Active Substance: FOLIC ACID
     Dosage: 5 MG/DAY
     Route: 065
     Dates: start: 20201105

REACTIONS (8)
  - Sepsis [Unknown]
  - Psychotic symptom [Unknown]
  - Haemorrhage [Unknown]
  - Empyema [Unknown]
  - Off label use [Unknown]
  - Prescribed underdose [Unknown]
  - Wrong technique in product usage process [Unknown]
  - Off label use [Unknown]

NARRATIVE: CASE EVENT DATE: 20201105
